FAERS Safety Report 8371493-2 (Version None)
Quarter: 2012Q2

REPORT INFORMATION
  Report Type: 
  Country: None (occurrence: None)
  Receive Date: 20120518
  Receipt Date: 20120509
  Transmission Date: 20120825
  Serious: Yes (Hospitalization)
  Sender: FDA-Public Use
  Company Number: FR-ASTRAZENECA-2012SE30968

PATIENT
  Age: 32105 Day
  Sex: Female

DRUGS (7)
  1. DIGOXIN [Suspect]
     Indication: ATRIAL FIBRILLATION
     Route: 048
     Dates: end: 20120417
  2. LYRICA [Suspect]
     Route: 048
  3. NEXIUM [Suspect]
     Route: 048
  4. ESIDRIX [Suspect]
     Indication: CARDIAC FAILURE
     Route: 048
  5. SINTROM [Suspect]
     Indication: ATRIAL FIBRILLATION
     Dosage: 0.25 DF 3 DAYS OUT OF 4
     Route: 048
  6. LEVOTHYROXINE SODIUM [Suspect]
     Indication: HYPOTHYROIDISM
     Route: 048
  7. LASIX [Suspect]
     Indication: CARDIAC FAILURE
     Route: 048

REACTIONS (3)
  - CEREBRAL HYPOPERFUSION [None]
  - BRADYCARDIA [None]
  - DECREASED APPETITE [None]
